FAERS Safety Report 6900869-2 (Version None)
Quarter: 2010Q3

REPORT INFORMATION
  Report Type: 
  Country: None (occurrence: None)
  Receive Date: 20100803
  Receipt Date: 20100727
  Transmission Date: 20110219
  Serious: Yes (Hospitalization)
  Sender: FDA-Public Use
  Company Number: A0834442A

PATIENT
  Age: 29 Year
  Sex: Female

DRUGS (1)
  1. AVANDIA [Suspect]
     Indication: DIABETES MELLITUS
     Dosage: 4MG TWICE PER DAY
     Route: 048
     Dates: start: 19990501, end: 20011201

REACTIONS (7)
  - CARDIAC FAILURE CONGESTIVE [None]
  - HEART VALVE STENOSIS [None]
  - INJURY [None]
  - OEDEMA PERIPHERAL [None]
  - PAIN [None]
  - RENAL DISORDER [None]
  - RENAL FAILURE [None]
